FAERS Safety Report 20596815 (Version 1)
Quarter: 2022Q1

REPORT INFORMATION
  Report Type: Spontaneous
  Country: IL (occurrence: None)
  Receive Date: 20220315
  Receipt Date: 20220315
  Transmission Date: 20220423
  Serious: Yes (Other)
  Sender: FDA-Public Use
  Company Number: IL-ROCHE-3046556

PATIENT
  Age: 75 Year
  Sex: Female

DRUGS (1)
  1. OCREVUS [Suspect]
     Active Substance: OCRELIZUMAB
     Indication: Primary progressive multiple sclerosis
     Dosage: LAST TREATMENT WAS RECEIVED ON /NOV/2021 AND HER NEXT DOSE IS DUE ON /MAY/2022
     Route: 065
     Dates: start: 2018, end: 202111

REACTIONS (2)
  - Pancreatic carcinoma [Unknown]
  - Weight decreased [Unknown]
